FAERS Safety Report 4285412-1 (Version None)
Quarter: 2004Q1

REPORT INFORMATION
  Report Type: 
  Country: None (occurrence: None)
  Receive Date: 20040202
  Receipt Date: 20040122
  Transmission Date: 20041129
  Serious: Yes (Other)
  Sender: FDA-Public Use
  Company Number: UKP04000022

PATIENT

DRUGS (4)
  1. ACTONEL [Suspect]
     Indication: OSTEOPOROSIS PROPHYLAXIS
     Dosage: 35 MG, 1 ONLY, ORAL
     Route: 048
     Dates: start: 20031220, end: 20031220
  2. FUROSEMIDE [Concomitant]
  3. PREDNISOLONE [Concomitant]
  4. CALCIUM WITH VITAMIN D (CALCIUM PHOSPHATE, CALCIUM SODIUM LACTATE) [Concomitant]

REACTIONS (2)
  - EMOTIONAL DISTRESS [None]
  - HALLUCINATION, AUDITORY [None]
